FAERS Safety Report 14824325 (Version 1)
Quarter: 2018Q2

REPORT INFORMATION
  Report Type: Spontaneous
  Country: FR (occurrence: FR)
  Receive Date: 20180429
  Receipt Date: 20180429
  Transmission Date: 20180711
  Serious: Yes (Hospitalization)
  Sender: FDA-Public Use
  Company Number: FR-UCBSA-2018018013

PATIENT
  Age: 91 Year
  Sex: Male

DRUGS (2)
  1. EPITOMAX [Suspect]
     Active Substance: TOPIRAMATE
     Indication: EPILEPSY
     Dosage: 200 MG DAILY DOSE
     Route: 048
     Dates: start: 20180217
  2. KEPPRA [Suspect]
     Active Substance: LEVETIRACETAM
     Indication: EPILEPSY
     Dosage: 1000 MG DAILY DOSE
     Route: 048
     Dates: start: 20180208

REACTIONS (3)
  - Decreased appetite [Recovered/Resolved]
  - Weight decreased [Recovered/Resolved]
  - Starvation [Recovered/Resolved]

NARRATIVE: CASE EVENT DATE: 201803
